FAERS Safety Report 4633285-7 (Version None)
Quarter: 2005Q2

REPORT INFORMATION
  Report Type: 
  Country: None (occurrence: None)
  Receive Date: 20050408
  Receipt Date: 20050329
  Transmission Date: 20051028
  Serious: Yes (Hospitalization)
  Sender: FDA-Public Use
  Company Number: 2005CG00633

PATIENT
  Age: 64 Year
  Sex: Male
  Weight: 79 kg

DRUGS (8)
  1. MOPRAL [Suspect]
     Dosage: 1 DF QD PO
     Route: 048
     Dates: start: 20050219, end: 20050224
  2. VEPESID [Suspect]
     Indication: LYMPHOMA
     Dosage: 200 MG QD IV
     Route: 042
     Dates: start: 20050223, end: 20050223
  3. METHOTREXATE [Suspect]
     Indication: LYMPHOMA
     Dosage: 6 G QD IV
     Route: 042
     Dates: start: 20050222, end: 20050222
  4. SOLU-MEDROL [Concomitant]
  5. AMLOR [Concomitant]
  6. TAHOR [Concomitant]
  7. FOZITEC [Concomitant]
  8. ZOPHREN [Concomitant]

REACTIONS (1)
  - RENAL FAILURE ACUTE [None]
